FAERS Safety Report 6829717-6 (Version None)
Quarter: 2010Q3

REPORT INFORMATION
  Report Type: 
  Country: None (occurrence: None)
  Receive Date: 20100709
  Receipt Date: 20070530
  Transmission Date: 20110219
  Serious: No
  Sender: FDA-Public Use
  Company Number: US-PFIZER INC-2007018877

PATIENT
  Sex: Female
  Weight: 64.86 kg

DRUGS (8)
  1. CHANTIX [Suspect]
     Indication: SMOKING CESSATION THERAPY
     Route: 048
     Dates: start: 20070223
  2. VALIUM [Concomitant]
     Indication: MUSCLE SPASMS
  3. SYNTHROID [Concomitant]
  4. GEODON [Concomitant]
  5. DEPAKOTE [Concomitant]
     Dosage: AT BEDTIME
  6. AMBIEN [Concomitant]
     Dosage: AT BEDTIME
  7. SEROQUEL [Concomitant]
     Dosage: AT BEDTIME
  8. PERCOCET [Concomitant]

REACTIONS (3)
  - BURNING SENSATION [None]
  - DECREASED APPETITE [None]
  - NAUSEA [None]
